FAERS Safety Report 8138136-4 (Version None)
Quarter: 2012Q1

REPORT INFORMATION
  Report Type: 
  Country: None (occurrence: None)
  Receive Date: 20120215
  Receipt Date: 20120215
  Transmission Date: 20120608
  Serious: Yes (Other)
  Sender: FDA-Public Use
  Company Number: None

PATIENT
  Age: 41 Year
  Sex: Male
  Weight: 120.2 kg

DRUGS (1)
  1. NIASPAN [Suspect]
     Indication: HYPERLIPIDAEMIA
     Dosage: 500MG
     Route: 048
     Dates: start: 20120130, end: 20120213

REACTIONS (13)
  - DIZZINESS [None]
  - LOSS OF CONSCIOUSNESS [None]
  - PAIN IN EXTREMITY [None]
  - SWELLING FACE [None]
  - OCULAR HYPERAEMIA [None]
  - DROOLING [None]
  - ERYTHEMA [None]
  - LIP SWELLING [None]
  - TREMOR [None]
  - FLUSHING [None]
  - FEELING ABNORMAL [None]
  - PARAESTHESIA [None]
  - BLOOD PRESSURE DECREASED [None]
